FAERS Safety Report 22049018 (Version 1)
Quarter: 2023Q1

REPORT INFORMATION
  Report Type: Spontaneous
  Country: US (occurrence: None)
  Receive Date: 20230226
  Receipt Date: 20230226
  Transmission Date: 20230418
  Serious: Yes (Hospitalization, Disabling)
  Sender: FDA-Public Use
  Company Number: None

PATIENT
  Age: 17 Year
  Sex: Male
  Weight: 78.75 kg

DRUGS (3)
  1. ROBOHBR COUGH SUPPRESSANT [Suspect]
     Active Substance: DEXTROMETHORPHAN HYDROBROMIDE
     Indication: Euphoric mood
     Route: 048
     Dates: start: 20200204
  2. TRAZODONE [Concomitant]
     Active Substance: TRAZODONE HYDROCHLORIDE
  3. GABAPENTIN [Concomitant]
     Active Substance: GABAPENTIN

REACTIONS (2)
  - Overdose [None]
  - Substance abuser [None]

NARRATIVE: CASE EVENT DATE: 20200204
